FAERS Safety Report 5694135-3 (Version None)
Quarter: 2008Q2

REPORT INFORMATION
  Report Type: 
  Country: None (occurrence: None)
  Receive Date: 20080402
  Receipt Date: 20080325
  Transmission Date: 20081010
  Serious: Yes (Hospitalization)
  Sender: FDA-Public Use
  Company Number: 163-20785-08031597

PATIENT
  Age: 52 Year
  Sex: Female

DRUGS (19)
  1. THALOMID [Suspect]
     Indication: OVARIAN CANCER
     Dosage: 50 MG, 1 IN 1 D, ORAL; 100 MG, 1 IN 1 D, ORAL; 100-200 MG, DAILY, ORAL
     Route: 048
     Dates: start: 20060208, end: 20061201
  2. THALOMID [Suspect]
     Indication: OVARIAN CANCER
     Dosage: 50 MG, 1 IN 1 D, ORAL; 100 MG, 1 IN 1 D, ORAL; 100-200 MG, DAILY, ORAL
     Route: 048
     Dates: start: 20070101, end: 20071001
  3. THALOMID [Suspect]
     Indication: OVARIAN CANCER
     Dosage: 50 MG, 1 IN 1 D, ORAL; 100 MG, 1 IN 1 D, ORAL; 100-200 MG, DAILY, ORAL
     Route: 048
     Dates: start: 20071101, end: 20071101
  4. THALOMID [Suspect]
  5. TOPOTECAN (TOPOTECAN) [Concomitant]
  6. POTASSIUM (POTASSIUM) [Concomitant]
  7. ZANTAC [Concomitant]
  8. DEXAMETHASONE TAB [Concomitant]
  9. STOOL SOFTENER (DOCUSATE SODIUM) [Concomitant]
  10. LASIX [Concomitant]
  11. VALIUM [Concomitant]
  12. LORTAB [Concomitant]
  13. ALLEGRA [Concomitant]
  14. COUMADIN [Concomitant]
  15. IMODIUM [Concomitant]
  16. ALOXI [Concomitant]
  17. DECADRON [Concomitant]
  18. ARANESP [Concomitant]
  19. NEUPOGEN [Concomitant]

REACTIONS (3)
  - FALL [None]
  - HIP FRACTURE [None]
  - HYPERSENSITIVITY [None]
